FAERS Safety Report 8793301 (Version 2)
Quarter: 2012Q4

REPORT INFORMATION
  Report Type: Report from Study
  Country: HU (occurrence: HU)
  Receive Date: 20120918
  Receipt Date: 20121017
  Transmission Date: 20130627
  Serious: Yes (Hospitalization)
  Sender: FDA-Public Use
  Company Number: HU-ROCHE-1126003

PATIENT
  Age: 54 Year
  Sex: Female
  Weight: 70 kg

DRUGS (4)
  1. RIBAVIRIN [Suspect]
     Indication: HEPATITIS C
     Dosage: Last dose prior to AE: 04/SEP/2012, TEMPORARILY INTERRUPTED ON 05/Sep/2012
     Route: 048
     Dates: start: 20110825
  2. PEG-INTERFERON ALFA 2A [Suspect]
     Indication: HEPATITIS C
     Route: 065
     Dates: start: 20110825
  3. NEBIVOLOL [Concomitant]
     Route: 065
     Dates: start: 2009
  4. AMLODIPIN [Concomitant]
     Route: 065
     Dates: start: 2010

REACTIONS (2)
  - Anaemia [Unknown]
  - Unevaluable event [Unknown]
